FAERS Safety Report 13363251 (Version 1)
Quarter: 2017Q1

REPORT INFORMATION
  Report Type: Spontaneous
  Country: RS (occurrence: RS)
  Receive Date: 20170323
  Receipt Date: 20170323
  Transmission Date: 20170429
  Serious: Yes (Death, Other)
  Sender: FDA-Public Use
  Company Number: RS-BAYER-2017-054072

PATIENT
  Age: 63 Year
  Sex: Female

DRUGS (1)
  1. ULTRAVIST [Suspect]
     Active Substance: IOPROMIDE
     Indication: COMPUTERISED TOMOGRAM
     Dosage: UNK UNK, ONCE
     Dates: start: 20170309, end: 20170309

REACTIONS (3)
  - Anaphylactic shock [None]
  - Contrast media allergy [None]
  - Death [Fatal]

NARRATIVE: CASE EVENT DATE: 20170309
